FAERS Safety Report 20717245 (Version 1)
Quarter: 2022Q2

REPORT INFORMATION
  Report Type: Spontaneous
  Country: US (occurrence: US)
  Receive Date: 20220417
  Receipt Date: 20220417
  Transmission Date: 20220720
  Serious: No
  Sender: FDA-Public Use
  Company Number: US-SANOFI-01058008

PATIENT
  Age: 43 Year
  Sex: Female

DRUGS (1)
  1. LANTUS SOLOSTAR [Suspect]
     Active Substance: INSULIN GLARGINE
     Indication: Type 1 diabetes mellitus
     Dosage: DRUG STRUCTURE DOSAGE : 50 UNITS AM/ 45 UNITS PM DRUG INTERVAL DOSAGE : BID DRUG TREATMENT DURATION:

REACTIONS (2)
  - Product prescribing issue [Unknown]
  - Inappropriate schedule of product administration [Unknown]
